FAERS Safety Report 9020751 (Version 1)
Quarter: 2013Q1

REPORT INFORMATION
  Report Type: Spontaneous
  Country: US (occurrence: US)
  Receive Date: 20130119
  Receipt Date: 20130119
  Transmission Date: 20140127
  Serious: No
  Sender: FDA-Public Use
  Company Number: US-ALLERGAN-1205441US

PATIENT
  Age: 46 Year
  Sex: Female

DRUGS (3)
  1. BOTOX? [Suspect]
     Indication: HYPERHIDROSIS
     Dosage: 75 UNITS IN EACH HAND
     Route: 023
     Dates: start: 201203, end: 201203
  2. BOTOX? [Suspect]
     Indication: HYPERHIDROSIS
     Dosage: 75 UNITS IN EACH FOOT
     Route: 030
     Dates: start: 201203, end: 201203
  3. UNSPECIFIED INGREDIENT [Suspect]
     Indication: LOCAL ANAESTHESIA
     Dosage: UNK
     Dates: start: 201203, end: 201203

REACTIONS (3)
  - Muscular weakness [Recovered/Resolved]
  - Injection site pain [Recovered/Resolved]
  - Injection site bruising [Recovered/Resolved]
